FAERS Safety Report 16889741 (Version 2)
Quarter: 2019Q4

REPORT INFORMATION
  Report Type: Spontaneous
  Country: IT (occurrence: IT)
  Receive Date: 20191007
  Receipt Date: 20191030
  Transmission Date: 20200122
  Serious: Yes (Other)
  Sender: FDA-Public Use
  Company Number: IT-PFIZER INC-2019423485

PATIENT
  Sex: Female

DRUGS (1)
  1. TAVOR (LORAZEPAM) [Suspect]
     Active Substance: LORAZEPAM
     Indication: INSOMNIA
     Dosage: 2.5 MG, UNK

REACTIONS (18)
  - Dysuria [Unknown]
  - Rash [Unknown]
  - Pruritus genital [Unknown]
  - Dysphagia [Unknown]
  - Lip swelling [Unknown]
  - Weight increased [Unknown]
  - Terminal insomnia [Unknown]
  - Circumstance or information capable of leading to medication error [Unknown]
  - Anxiety [Unknown]
  - Pruritus [Unknown]
  - Memory impairment [Unknown]
  - Tachycardia [Unknown]
  - Agitation [Unknown]
  - Swelling [Unknown]
  - Vaginal discharge [Unknown]
  - Dysentery [Unknown]
  - Genital burning sensation [Unknown]
  - Hunger [Unknown]
